FAERS Safety Report 19354954 (Version 1)
Quarter: 2021Q2

REPORT INFORMATION
  Report Type: Report from Study
  Country: US (occurrence: US)
  Receive Date: 20210601
  Receipt Date: 20210601
  Transmission Date: 20210717
  Serious: Yes (Death, Other)
  Sender: FDA-Public Use
  Company Number: US-SUN PHARMACEUTICAL INDUSTRIES LTD-2021R1-298497

PATIENT
  Age: 63 Year
  Sex: Female

DRUGS (1)
  1. CLOZAPINE. [Suspect]
     Active Substance: CLOZAPINE
     Indication: SCHIZOAFFECTIVE DISORDER
     Dosage: UNK UNK, BID
     Route: 048

REACTIONS (4)
  - Lung neoplasm malignant [Fatal]
  - Neutrophilia [Recovering/Resolving]
  - Death [Fatal]
  - Neutropenia [Recovering/Resolving]

NARRATIVE: CASE EVENT DATE: 20171018
